FAERS Safety Report 5636694-2 (Version None)
Quarter: 2008Q1

REPORT INFORMATION
  Report Type: 
  Country: None (occurrence: None)
  Receive Date: 20080225
  Receipt Date: 20080221
  Transmission Date: 20080703
  Serious: Yes (Death)
  Sender: FDA-Public Use
  Company Number: JP-ASTRAZENECA-2008AP01269

PATIENT
  Age: 75 Year
  Sex: Male

DRUGS (1)
  1. XYLOCAINE [Suspect]
     Indication: NERVE BLOCK
     Route: 053

REACTIONS (2)
  - SHOCK [None]
  - VENTRICULAR ARRHYTHMIA [None]
